FAERS Safety Report 13643898 (Version 1)
Quarter: 2017Q2

REPORT INFORMATION
  Report Type: Spontaneous
  Country: CA (occurrence: CA)
  Receive Date: 20170612
  Receipt Date: 20170612
  Transmission Date: 20170830
  Serious: Yes (Hospitalization)
  Sender: FDA-Public Use
  Company Number: CA-MATRIXX INITIATIVES, INC.-2021853

PATIENT

DRUGS (1)
  1. ZICAM COLD REMEDY ULTRA RAPIDMELTS (ZINC ACETATE\ZINC GLUCONATE) [Suspect]
     Active Substance: HOMEOPATHICS\ZINC ACETATE\ZINC GLUCONATE
     Route: 048

REACTIONS (1)
  - Anaphylactic reaction [None]
